FAERS Safety Report 10074412 (Version 1)
Quarter: 2014Q2

REPORT INFORMATION
  Report Type: Spontaneous
  Country: US (occurrence: US)
  Receive Date: 20140411
  Receipt Date: 20140411
  Transmission Date: 20141212
  Serious: No
  Sender: FDA-Public Use
  Company Number: US-SANOFI-AVENTIS-2013SA076355

PATIENT
  Age: 75 Year
  Sex: Male

DRUGS (2)
  1. ALLEGRA D [Suspect]
     Indication: HYPERSENSITIVITY
     Dosage: PRODUCT STARTED FROM YEARS AGO. DOSE : 60MG/120MG
     Route: 048
  2. ALLEGRA D [Suspect]
     Indication: HYPERSENSITIVITY
     Dosage: TOOK TWO TABLETS AT ONE TIME. DOSE : 60MG/120MG
     Route: 048
     Dates: start: 20130723, end: 20130723

REACTIONS (1)
  - Extra dose administered [Unknown]
